FAERS Safety Report 9684672 (Version 1)
Quarter: 2013Q4

REPORT INFORMATION
  Report Type: Spontaneous
  Country: US (occurrence: None)
  Receive Date: 20131108
  Receipt Date: 20131108
  Transmission Date: 20140711
  Serious: Yes (Life-Threatening, Hospitalization, Other)
  Sender: FDA-Public Use
  Company Number: 2013HINLIT0216

PATIENT
  Age: 16 Year
  Sex: Female

DRUGS (3)
  1. ESCITALOPRAM [Suspect]
     Indication: PRODUCT USED FOR UNKNOWN INDICATION
     Dosage: 500 MG, UNK, UNKNOWN
  2. TRAMADOL+PARACETAMOL (TRAMADOL+PARACETAMOL) [Concomitant]
  3. HYDROCODONE+PARACETAMOL (HYDROCODONE+PARACETAMOL) [Concomitant]

REACTIONS (6)
  - Electrocardiogram abnormal [None]
  - Bundle branch block right [None]
  - Syncope [None]
  - Lethargy [None]
  - Laceration [None]
  - Overdose [None]
